FAERS Safety Report 11569262 (Version 4)
Quarter: 2016Q1

REPORT INFORMATION
  Report Type: Spontaneous
  Country: JP (occurrence: JP)
  Receive Date: 20150929
  Receipt Date: 20160122
  Transmission Date: 20160525
  Serious: Yes (Hospitalization, Other)
  Sender: FDA-Public Use
  Company Number: JP-ASTELLAS-2015JP019468

PATIENT
  Age: 69 Year
  Sex: Male
  Weight: 46 kg

DRUGS (5)
  1. [NO SUSPECT PRODUCT] [Suspect]
     Active Substance: UNSPECIFIED INGREDIENT
  2. OYPALOMIN [Suspect]
     Active Substance: IOPAMIDOL
     Route: 042
     Dates: start: 20150914, end: 20150914
  3. OYPALOMIN [Suspect]
     Active Substance: IOPAMIDOL
     Route: 042
     Dates: start: 20150917, end: 20150917
  4. OYPALOMIN [Suspect]
     Active Substance: IOPAMIDOL
     Indication: PRODUCT USED FOR UNKNOWN INDICATION
     Route: 042
     Dates: start: 20150904, end: 20150904
  5. OYPALOMIN [Suspect]
     Active Substance: IOPAMIDOL
     Route: 042
     Dates: start: 20150921, end: 20150921

REACTIONS (1)
  - Renal disorder [Recovering/Resolving]

NARRATIVE: CASE EVENT DATE: 20150921
